FAERS Safety Report 10462118 (Version 6)
Quarter: 2020Q3

REPORT INFORMATION
  Report Type: Spontaneous
  Country: CA (occurrence: CA)
  Receive Date: 20140918
  Receipt Date: 20200807
  Transmission Date: 20201102
  Serious: Yes (Life-Threatening, Hospitalization, Other)
  Sender: FDA-Public Use
  Company Number: CA-PFIZER INC-2014255995

PATIENT
  Age: 36 Year
  Sex: Male
  Weight: 91 kg

DRUGS (3)
  1. ZOLOFT [Suspect]
     Active Substance: SERTRALINE HYDROCHLORIDE
     Indication: DEPRESSION
     Dosage: 50 MG, DAILY
     Route: 048
     Dates: start: 20140828, end: 2014
  2. ZOLOFT [Suspect]
     Active Substance: SERTRALINE HYDROCHLORIDE
     Indication: POST-TRAUMATIC STRESS DISORDER
     Dosage: 100 MG (TWO 50?MG PILLS), 1X/DAY
     Route: 048
     Dates: start: 2014, end: 20140902
  3. ZOLOFT [Suspect]
     Active Substance: SERTRALINE HYDROCHLORIDE
     Indication: ANXIETY

REACTIONS (24)
  - Serotonin syndrome [Not Recovered/Not Resolved]
  - Blindness [Recovered/Resolved]
  - Eye pain [Not Recovered/Not Resolved]
  - Photophobia [Not Recovered/Not Resolved]
  - Illness [Not Recovered/Not Resolved]
  - Brain injury [Not Recovered/Not Resolved]
  - Pain [Not Recovered/Not Resolved]
  - Nausea [Not Recovered/Not Resolved]
  - Bedridden [Not Recovered/Not Resolved]
  - Loss of personal independence in daily activities [Not Recovered/Not Resolved]
  - Blood pressure increased [Recovered/Resolved]
  - Disturbance in attention [Not Recovered/Not Resolved]
  - Eye disorder [Unknown]
  - Headache [Not Recovered/Not Resolved]
  - Cold sweat [Unknown]
  - Decreased appetite [Unknown]
  - Quality of life decreased [Unknown]
  - Speech disorder [Not Recovered/Not Resolved]
  - Heart rate increased [Unknown]
  - Paranoia [Not Recovered/Not Resolved]
  - Agoraphobia [Unknown]
  - Cognitive disorder [Not Recovered/Not Resolved]
  - Feeling abnormal [Not Recovered/Not Resolved]
  - Heart rate irregular [Not Recovered/Not Resolved]

NARRATIVE: CASE EVENT DATE: 2014
